FAERS Safety Report 20707865 (Version 5)
Quarter: 2022Q3

REPORT INFORMATION
  Report Type: Spontaneous
  Country: DE (occurrence: DE)
  Receive Date: 20220414
  Receipt Date: 20220725
  Transmission Date: 20221027
  Serious: Yes (Life-Threatening, Hospitalization, Other)
  Sender: FDA-Public Use
  Company Number: DE-PFIZER INC-202200514227

PATIENT
  Age: 74 Year
  Sex: Female
  Weight: 66 kg

DRUGS (20)
  1. INLYTA [Suspect]
     Active Substance: AXITINIB
     Indication: Metastatic renal cell carcinoma
     Dosage: 5 MG, 2X/DAY
     Dates: start: 20220303, end: 20220314
  2. PEMBROLIZUMAB [Suspect]
     Active Substance: PEMBROLIZUMAB
     Indication: Metastatic renal cell carcinoma
     Dosage: 200 MG, EVERY 3 WEEKS
     Route: 042
     Dates: start: 20220303
  3. IBU [Concomitant]
     Active Substance: IBUPROFEN
     Indication: Arthralgia
     Dosage: UNK, AS NEEDED
  4. XGEVA [Concomitant]
     Active Substance: DENOSUMAB
     Dosage: UNK, MONTHLY
     Route: 058
  5. CALCIUM VITAMIN D3 ACIS [Concomitant]
     Indication: Prophylaxis
     Dosage: 500 MG, 1X/DAY 0-1-0-0
  6. CHOLECALCIFEROL [Concomitant]
     Active Substance: CHOLECALCIFEROL
     Dosage: 20000 IU, WEEKLY
  7. SALBUTAMOL CT [Concomitant]
     Dosage: 1 DF, 2X/DAY (2-0-0-0)
  8. ATORVASTATIN [Concomitant]
     Active Substance: ATORVASTATIN
     Dosage: 20 MG, 1X/DAY (0-0-1-0)
  9. BISOPROLOL [Concomitant]
     Active Substance: BISOPROLOL
     Dosage: 10 MG, 1X/DAY (0-0-1-0)
  10. IVABRADINE [Concomitant]
     Active Substance: IVABRADINE
     Dosage: 5 MG, 2X/DAY (1-0-1-0)
  11. ALLOPURINOL [Concomitant]
     Active Substance: ALLOPURINOL
     Dosage: 100 MG, 1X/DAY (1-0-0-0)
  12. NEBIVOLOL HYDROCHLORIDE [Concomitant]
     Active Substance: NEBIVOLOL HYDROCHLORIDE
     Dosage: 5 MG, 1X/DAY (1-0-0-0)
  13. RAMIPRIL [Concomitant]
     Active Substance: RAMIPRIL
     Dosage: 2.5 MG (1/2-0-0-0) CAREFUL DOSE REDUCTION
  14. INDAPAMIDE [Concomitant]
     Active Substance: INDAPAMIDE
     Dosage: 2.5 MG, 1X/DAY (1-0-0-0)
  15. ZOLPIDEM TARTRATE [Concomitant]
     Active Substance: ZOLPIDEM TARTRATE
     Dosage: 5 MG, 1X/DAY (0-0-0-1)
  16. FOLPLUS [Concomitant]
     Dosage: UNK, 1X/DAY (1-0-0-0)
  17. DIETARY SUPPLEMENT [Concomitant]
     Active Substance: DIETARY SUPPLEMENT
     Dosage: UNK, AS NEEDED
  18. LEVETIRACETAM [Concomitant]
     Active Substance: LEVETIRACETAM
     Dosage: 1000 MG, 2X/DAY (1-0-1-0)
  19. BUPRENORPHINE [Concomitant]
     Active Substance: BUPRENORPHINE
     Dosage: 5 MG (PER PATH) 5UG/H
  20. HYDROCORTISON GALEN [Concomitant]
     Dosage: 10 MG (1-1/2-0-0) PAUSE WHEN PEMBROLIZUMAB ADMINISTERED

REACTIONS (10)
  - Malignant hypertension [Recovered/Resolved]
  - Tension headache [Not Recovered/Not Resolved]
  - Visual field defect [Unknown]
  - Facial pain [Unknown]
  - Hypertensive crisis [Recovered/Resolved]
  - Pneumonia aspiration [Recovered/Resolved]
  - Arteriosclerosis [Unknown]
  - Posterior reversible encephalopathy syndrome [Not Recovered/Not Resolved]
  - Asthenia [Unknown]
  - Fatigue [Unknown]

NARRATIVE: CASE EVENT DATE: 20220301
